FAERS Safety Report 9174304 (Version 1)
Quarter: 2013Q1

REPORT INFORMATION
  Report Type: Spontaneous
  Country: DE (occurrence: DE)
  Receive Date: 20130320
  Receipt Date: 20130320
  Transmission Date: 20140127
  Serious: Yes (Hospitalization, Other)
  Sender: FDA-Public Use
  Company Number: DE-JNJFOC-20130308182

PATIENT
  Age: 77 Year
  Sex: Male

DRUGS (1)
  1. XARELTO [Suspect]
     Indication: THROMBOSIS PROPHYLAXIS
     Route: 048

REACTIONS (4)
  - Cerebral ischaemia [Unknown]
  - Ataxia [Unknown]
  - Abasia [Unknown]
  - Dizziness [Unknown]
